FAERS Safety Report 10073923 (Version 2)
Quarter: 2014Q2

REPORT INFORMATION
  Report Type: Spontaneous
  Country: US (occurrence: US)
  Receive Date: 20140412
  Receipt Date: 20140514
  Transmission Date: 20141212
  Serious: No
  Sender: FDA-Public Use
  Company Number: US-009507513-1404USA005398

PATIENT
  Age: 20 Year
  Sex: Female
  Weight: 128.35 kg

DRUGS (1)
  1. NEXPLANON [Suspect]
     Indication: CONTRACEPTION
     Dosage: UNK
     Route: 059
     Dates: start: 20130702, end: 20140403

REACTIONS (4)
  - Haemorrhage [Recovered/Resolved]
  - Weight increased [Recovered/Resolved]
  - Mood swings [Recovered/Resolved]
  - Device breakage [Recovered/Resolved]
